FAERS Safety Report 9498200 (Version 1)
Quarter: 2013Q3

REPORT INFORMATION
  Report Type: Spontaneous
  Country: SG (occurrence: SG)
  Receive Date: 20130904
  Receipt Date: 20130904
  Transmission Date: 20140515
  Serious: Yes (Hospitalization)
  Sender: FDA-Public Use
  Company Number: SG-ABBOTT-13P-141-1140892-00

PATIENT
  Age: 32 Year
  Sex: Male

DRUGS (4)
  1. HUMIRA [Suspect]
     Indication: CROHN^S DISEASE
     Dosage: INDUCTION DOSE FRO 2 DAYS
     Route: 058
     Dates: start: 20130824, end: 20130825
  2. HUMIRA [Suspect]
     Dosage: INDUCTION DOSE
     Route: 058
     Dates: start: 20130825, end: 20130825
  3. AZATHIOPRINE [Concomitant]
     Indication: PRODUCT USED FOR UNKNOWN INDICATION
     Dosage: EVERY MORNING
     Route: 048
     Dates: start: 20121109
  4. BUDENOFALK [Concomitant]
     Indication: PRODUCT USED FOR UNKNOWN INDICATION
     Route: 048
     Dates: start: 20130613

REACTIONS (1)
  - Pyrexia [Recovering/Resolving]
